FAERS Safety Report 5909313-5 (Version None)
Quarter: 2008Q4

REPORT INFORMATION
  Report Type: 
  Country: None (occurrence: None)
  Receive Date: 20081006
  Receipt Date: 20080924
  Transmission Date: 20090506
  Serious: Yes (Other)
  Sender: FDA-Public Use
  Company Number: BE-PFIZER INC-2008071718

PATIENT
  Sex: Female
  Weight: 125 kg

DRUGS (14)
  1. LYRICA [Suspect]
     Indication: DIABETIC NEUROPATHY
     Route: 048
     Dates: start: 20080616, end: 20080905
  2. LISINOPRIL [Interacting]
  3. BISOPROLOL [Concomitant]
     Route: 048
  4. BARNIDIPINE HYDROCHLORIDE [Concomitant]
     Route: 048
  5. BURINEX [Concomitant]
     Route: 048
  6. SPIRONOLACTONE [Concomitant]
     Route: 048
     Dates: start: 20080623, end: 20080906
  7. GLUCOPHAGE [Concomitant]
     Route: 048
     Dates: end: 20080906
  8. LANTUS [Concomitant]
  9. SIMVASTATIN [Concomitant]
     Route: 048
  10. MOLSIDOMINE [Concomitant]
     Route: 048
  11. CARDIOASPIRINE [Concomitant]
     Route: 048
  12. ALL OTHER THERAPEUTIC PRODUCTS [Concomitant]
  13. TRAZODONE HCL [Concomitant]
  14. PLAVIX [Concomitant]
     Route: 048

REACTIONS (2)
  - DRUG INTERACTION [None]
  - RENAL FAILURE [None]
